FAERS Safety Report 5601898-1 (Version None)
Quarter: 2008Q1

REPORT INFORMATION
  Report Type: 
  Country: None (occurrence: None)
  Receive Date: 20080109
  Receipt Date: 20070215
  Transmission Date: 20080703
  Serious: Yes (Life-Threatening, Hospitalization)
  Sender: FDA-Public Use
  Company Number: 070219-0000199

PATIENT
  Sex: Male
  Weight: 45 kg

DRUGS (7)
  1. DACTINOMYCIN [Suspect]
     Indication: RHABDOMYOSARCOMA
     Dosage: 2 MG;Q6W;IV
     Route: 042
     Dates: start: 20050106, end: 20050425
  2. CYCLOPHOSPHAMIDE [Suspect]
     Indication: RHABDOMYOSARCOMA
     Dosage: IV
     Route: 042
     Dates: start: 20050106, end: 20050613
  3. BACTRIM DS [Concomitant]
  4. CELEBREX [Concomitant]
  5. MIRALAX [Concomitant]
  6. PALONOSETRON [Concomitant]
  7. VALTREX [Concomitant]

REACTIONS (1)
  - VENOOCCLUSIVE DISEASE [None]
